FAERS Safety Report 8171827-8 (Version None)
Quarter: 2012Q1

REPORT INFORMATION
  Report Type: 
  Country: None (occurrence: None)
  Receive Date: 20120228
  Receipt Date: 20120215
  Transmission Date: 20120608
  Serious: Yes (Other)
  Sender: FDA-Public Use
  Company Number: AU-CELGENEUS-008-21660-11112189

PATIENT
  Sex: Female

DRUGS (1)
  1. ABRAXANE [Suspect]
     Dosage: 150 MILLIGRAM/SQ. METER
     Route: 065
     Dates: start: 20111109, end: 20111109

REACTIONS (1)
  - ANAPHYLACTIC REACTION [None]
